FAERS Safety Report 10993853 (Version 2)
Quarter: 2015Q2

REPORT INFORMATION
  Report Type: Spontaneous
  Country: GB (occurrence: None)
  Receive Date: 20150403
  Receipt Date: 20150415
  Transmission Date: 20150821
  Serious: Yes (Other)
  Sender: FDA-Public Use
  Company Number: NL01PV15_38761

PATIENT
  Age: 65 Year
  Sex: Male

DRUGS (4)
  1. UNKNOWN (TAMSULOSIN) UNKNOWN [Suspect]
     Active Substance: TAMSULOSIN
     Route: 048
     Dates: start: 20150223, end: 20150314
  2. SILDENAFIL. [Concomitant]
     Active Substance: SILDENAFIL
  3. UNKNOWN (BISOPROLOL) [Concomitant]
  4. MOMETASONE [Concomitant]
     Active Substance: MOMETASONE

REACTIONS (3)
  - Eye pain [None]
  - Stevens-Johnson syndrome [None]
  - Ocular hyperaemia [None]

NARRATIVE: CASE EVENT DATE: 20150225
